FAERS Safety Report 7876835-X (Version None)
Quarter: 2011Q4

REPORT INFORMATION
  Report Type: 
  Country: None (occurrence: None)
  Receive Date: 20111031
  Receipt Date: 20111024
  Transmission Date: 20120403
  Serious: Yes (Other)
  Sender: FDA-Public Use
  Company Number: PHHY2011FR94200

PATIENT
  Age: 48 Year
  Sex: Male

DRUGS (1)
  1. ZOMETA [Suspect]
     Indication: HYPERCALCAEMIA
     Dosage: 4 MG, UNK
     Dates: start: 20111013

REACTIONS (1)
  - ATRIAL FIBRILLATION [None]
